FAERS Safety Report 9706835 (Version 3)
Quarter: 2014Q2

REPORT INFORMATION
  Report Type: Spontaneous
  Country: GB (occurrence: GB)
  Receive Date: 20131125
  Receipt Date: 20140502
  Transmission Date: 20141212
  Serious: Yes (Hospitalization)
  Sender: FDA-Public Use
  Company Number: GB-ELI_LILLY_AND_COMPANY-GB201311004348

PATIENT
  Age: 21 Year
  Sex: Female
  Weight: 84 kg

DRUGS (12)
  1. STRATTERA [Suspect]
     Indication: ATTENTION DEFICIT/HYPERACTIVITY DISORDER
     Dosage: 10 MG, QD
     Route: 048
     Dates: start: 20121002
  2. STRATTERA [Suspect]
     Dosage: 18 MG, QD
     Route: 048
     Dates: start: 201211
  3. STRATTERA [Suspect]
     Dosage: 25 MG, QD
     Route: 048
     Dates: start: 201301
  4. STRATTERA [Suspect]
     Dosage: 40 MG, QD
     Route: 048
     Dates: start: 201305
  5. STRATTERA [Suspect]
     Dosage: 60 MG, QD
     Route: 048
     Dates: start: 201308
  6. STRATTERA [Suspect]
     Dosage: 40 MG, QD
     Route: 048
     Dates: start: 201310, end: 201310
  7. STRATTERA [Suspect]
     Dosage: 25 MG, QD
     Route: 048
     Dates: start: 201311, end: 201312
  8. QUETIAPINE [Suspect]
     Indication: PRODUCT USED FOR UNKNOWN INDICATION
     Dosage: UNK, UNKNOWN
     Route: 065
     Dates: start: 201311, end: 201401
  9. CITALOPRAM [Suspect]
     Indication: PRODUCT USED FOR UNKNOWN INDICATION
     Dosage: 20 MG, UNKNOWN
     Route: 065
     Dates: start: 201302
  10. RISPERIDONE [Suspect]
     Indication: AGITATION
     Dosage: 0.5 MG, BID
     Route: 065
  11. CIRCADIN [Concomitant]
     Indication: INSOMNIA
     Dosage: 8 MG, UNKNOWN
     Route: 065
     Dates: start: 201306
  12. SERTRALINE [Concomitant]
     Indication: AGITATION
     Dosage: 50 MG, UNKNOWN
     Route: 065
     Dates: start: 201310

REACTIONS (8)
  - Bipolar I disorder [Not Recovered/Not Resolved]
  - Depression [Not Recovered/Not Resolved]
  - Merycism [Not Recovered/Not Resolved]
  - Major depression [Not Recovered/Not Resolved]
  - Attention deficit/hyperactivity disorder [Not Recovered/Not Resolved]
  - Somnolence [Not Recovered/Not Resolved]
  - Sedation [Not Recovered/Not Resolved]
  - Agitation [Not Recovered/Not Resolved]
